FAERS Safety Report 4360472-8 (Version None)
Quarter: 2004Q2

REPORT INFORMATION
  Report Type: 
  Country: None (occurrence: None)
  Receive Date: 20040514
  Receipt Date: 20040501
  Transmission Date: 20050107
  Serious: Yes (Other)
  Sender: FDA-Public Use
  Company Number: 2004011744

PATIENT
  Age: 16 Year
  Sex: Male
  Weight: 127.0072 kg

DRUGS (4)
  1. ZITHROMAX [Suspect]
     Indication: PHARYNGITIS
     Dosage: ORAL
     Route: 048
     Dates: start: 20031208, end: 20031210
  2. LORATADINE [Concomitant]
  3. HEPATITIS B VACCINE (HEPATITIS B VACCINE) [Concomitant]
  4. TUBERCULIN (TUBERCULIN) [Concomitant]

REACTIONS (30)
  - ABSCESS [None]
  - ACANTHOSIS NIGRICANS [None]
  - ALLERGY TO ANIMAL [None]
  - ANAPHYLACTIC SHOCK [None]
  - ASTHENIA [None]
  - BLOOD GLUCOSE INCREASED [None]
  - BURN OF INTERNAL ORGANS [None]
  - CHOKING [None]
  - DIARRHOEA [None]
  - DRUG HYPERSENSITIVITY [None]
  - DRUG INEFFECTIVE [None]
  - EMOTIONAL DISTRESS [None]
  - FEELING ABNORMAL [None]
  - GASTROOESOPHAGEAL REFLUX DISEASE [None]
  - HOUSE DUST ALLERGY [None]
  - LARYNGITIS [None]
  - LUNG DISORDER [None]
  - MYCOTIC ALLERGY [None]
  - NASOPHARYNGEAL DISORDER [None]
  - OESOPHAGEAL CANDIDIASIS [None]
  - OESOPHAGITIS [None]
  - OROPHARYNGEAL SWELLING [None]
  - PARAPHARYNGEAL ABSCESS [None]
  - PERITONSILLAR ABSCESS [None]
  - PHARYNGITIS [None]
  - SINUS DISORDER [None]
  - SPEECH DISORDER [None]
  - TONSILLAR DISORDER [None]
  - TONSILLITIS [None]
  - WEIGHT DECREASED [None]
